FAERS Safety Report 16544563 (Version 1)
Quarter: 2019Q3

REPORT INFORMATION
  Report Type: Spontaneous
  Country: US (occurrence: US)
  Receive Date: 20190709
  Receipt Date: 20190709
  Transmission Date: 20191004
  Serious: No
  Sender: FDA-Public Use
  Company Number: US-C B FLEET CO INC-201902-US-000374

PATIENT
  Sex: Male

DRUGS (1)
  1. NIX [Suspect]
     Active Substance: PERMETHRIN
     Indication: PRODUCT USE IN UNAPPROVED INDICATION
     Dosage: DOSAGE UNKNOWN
     Route: 061

REACTIONS (4)
  - Incorrect product administration duration [None]
  - Pain of skin [Recovering/Resolving]
  - Skin burning sensation [Recovered/Resolved]
  - Product use in unapproved indication [None]
